FAERS Safety Report 19948748 (Version 1)
Quarter: 2021Q4

REPORT INFORMATION
  Report Type: Spontaneous
  Country: GB (occurrence: GB)
  Receive Date: 20211012
  Receipt Date: 20211012
  Transmission Date: 20220303
  Serious: Yes (Other)
  Sender: FDA-Public Use
  Company Number: GB-ASCEND THERAPEUTICS US, LLC-2120488

PATIENT
  Age: 50 Year
  Sex: Female
  Weight: 68.94 kg

DRUGS (16)
  1. ESTROGEL [Suspect]
     Active Substance: ESTRADIOL
     Indication: Menopause
     Route: 061
     Dates: start: 20210916, end: 20210924
  2. ESTROGEL [Suspect]
     Active Substance: ESTRADIOL
  3. ESTRADIOL [Suspect]
     Active Substance: ESTRADIOL
     Route: 061
     Dates: start: 20210916, end: 20210924
  4. BALNEUM PLUS CREAM(UREA, POLIDOCANOL) [Concomitant]
     Route: 065
  5. BUTYLSCOPOLAMINE BROMIDE [Concomitant]
     Active Substance: BUTYLSCOPOLAMINE BROMIDE
     Route: 065
  6. MULTIVITAMIN(VITAMINS NOS) [Concomitant]
     Route: 065
  7. CALCICHEW D3(COLECALCIFEROL, CALCIUM CARBONATE) [Concomitant]
     Route: 065
  8. CETRABEN EMOLLIENT CREAM(WHITE SOFT PARAFFIN, LIGHT LIQUID PARAFFIN) [Concomitant]
     Route: 065
  9. CLOBADERM(CLOBETASOL PROPIONATE) [Concomitant]
     Route: 065
  10. DR REDDYS LABS UK SILDENAFIL(SILDENAFIL CITRATE) [Concomitant]
     Route: 065
     Dates: start: 20190101
  11. FERROUS SULFATE(FERROUS SULFATE) [Concomitant]
     Route: 065
  12. FEXOFENADINE HYDROCHLORIDE(FEXOFENADINE HYDROCHLORIDE) [Concomitant]
     Route: 065
  13. OCTASA(MESALAZINE) [Concomitant]
     Route: 065
  14. PUVASORALEN(METHOXSALEN) [Concomitant]
     Route: 065
  15. SERTRALIN(SERTRALINE) [Concomitant]
     Route: 065
  16. LEVOTHYROXINE(LEVOTHYROXINE) [Concomitant]
     Route: 065

REACTIONS (1)
  - Body temperature increased [Not Recovered/Not Resolved]
